FAERS Safety Report 6756838-9 (Version None)
Quarter: 2010Q2

REPORT INFORMATION
  Report Type: 
  Country: None (occurrence: None)
  Receive Date: 20100604
  Receipt Date: 20100601
  Transmission Date: 20101027
  Serious: Yes (Death)
  Sender: FDA-Public Use
  Company Number: PHHY2010NL35213

PATIENT
  Sex: Male

DRUGS (1)
  1. ZOMETA [Suspect]
     Indication: PROSTATE CANCER
     Dosage: UNK
     Route: 042
     Dates: start: 20100416

REACTIONS (2)
  - MALIGNANT NEOPLASM PROGRESSION [None]
  - TERMINAL STATE [None]
